FAERS Safety Report 10264293 (Version 1)
Quarter: 2014Q2

REPORT INFORMATION
  Report Type: Spontaneous
  Country: US (occurrence: US)
  Receive Date: 20140627
  Receipt Date: 20140627
  Transmission Date: 20141212
  Serious: No
  Sender: FDA-Public Use
  Company Number: US-TEVA-450449USA

PATIENT
  Sex: Female

DRUGS (1)
  1. PROPRANOLOL [Suspect]

REACTIONS (2)
  - Dizziness [Unknown]
  - Product odour abnormal [Unknown]
